FAERS Safety Report 8983426 (Version 2)
Quarter: 2013Q1

REPORT INFORMATION
  Report Type: Spontaneous
  Country: US (occurrence: US)
  Receive Date: 20121224
  Receipt Date: 20130122
  Transmission Date: 20140127
  Serious: Yes (Death)
  Sender: FDA-Public Use
  Company Number: US-BIOGENIDEC-2012BI061785

PATIENT
  Sex: Female

DRUGS (10)
  1. TYSABRI [Suspect]
     Indication: MULTIPLE SCLEROSIS
     Route: 042
     Dates: start: 20071121, end: 20100224
  2. CENTRUM MULTIVITAMIN [Concomitant]
     Route: 048
     Dates: end: 20110218
  3. VITAMIN D [Concomitant]
     Route: 048
     Dates: start: 20081215, end: 20090410
  4. OSCAL [Concomitant]
     Route: 048
     Dates: start: 20050715, end: 20110218
  5. VITAMIN D3 [Concomitant]
     Route: 048
     Dates: start: 20090410, end: 20110218
  6. ACTONEL [Concomitant]
     Dates: start: 20050715, end: 20081015
  7. DETROL LA [Concomitant]
     Dates: start: 20070731, end: 20081015
  8. LIPITOR [Concomitant]
     Route: 048
     Dates: end: 20110218
  9. PREMARIN [Concomitant]
     Route: 048
     Dates: end: 20081210
  10. ZITHROMAX Z-PAK [Concomitant]
     Route: 048
     Dates: start: 20080305, end: 20081015

REACTIONS (1)
  - Multiple sclerosis [Fatal]
